FAERS Safety Report 4522566-3 (Version None)
Quarter: 2004Q4

REPORT INFORMATION
  Report Type: 
  Country: None (occurrence: None)
  Receive Date: 20041207
  Receipt Date: 20041117
  Transmission Date: 20050328
  Serious: Yes (Hospitalization)
  Sender: FDA-Public Use
  Company Number: EWC041141492

PATIENT
  Age: 12 Year
  Sex: Male
  Weight: 39 kg

DRUGS (1)
  1. SOMATROPIN [Suspect]
     Indication: GROWTH HORMONE DEFICIENCY
     Dosage: 0.032 MG/6 WEEK
     Dates: start: 20021001

REACTIONS (1)
  - APPENDICITIS [None]
